FAERS Safety Report 5728631-7 (Version None)
Quarter: 2008Q2

REPORT INFORMATION
  Report Type: 
  Country: None (occurrence: None)
  Receive Date: 20080502
  Receipt Date: 20080502
  Transmission Date: 20081010
  Serious: No
  Sender: FDA-Public Use
  Company Number: None

PATIENT

DRUGS (2)
  1. CLOZAPINE [Suspect]
     Indication: SCHIZOAFFECTIVE DISORDER
     Dosage: 150MG BID; 500MG HS
     Dates: start: 20050801
  2. CLOZAPINE [Suspect]
     Indication: SCHIZOPHRENIA, PARANOID TYPE
     Dosage: 150MG BID; 500MG HS
     Dates: start: 20050801

REACTIONS (2)
  - DRUG EFFECT DECREASED [None]
  - PHARMACEUTICAL PRODUCT COMPLAINT [None]
